FAERS Safety Report 8513404 (Version 3)
Quarter: 2013Q4

REPORT INFORMATION
  Report Type: Spontaneous
  Country: US (occurrence: US)
  Receive Date: 20120416
  Receipt Date: 20131024
  Transmission Date: 20140711
  Serious: Yes (Congenital Anomaly, Other)
  Sender: FDA-Public Use
  Company Number: US-PFIZER INC-2012002238

PATIENT
  Sex: Male

DRUGS (16)
  1. ZOLOFT [Suspect]
     Indication: DEPRESSION
     Dosage: 100 MG, UNK
     Route: 064
     Dates: start: 20000919
  2. ZOLOFT [Suspect]
     Indication: ANXIETY
     Dosage: UNK
     Route: 064
     Dates: start: 2004
  3. ZOLOFT [Suspect]
     Indication: AFFECTIVE DISORDER
  4. SERTRALINE HCL [Suspect]
     Dosage: UNK
     Route: 064
     Dates: start: 2004
  5. CLONAZEPAM [Concomitant]
     Dosage: UNK
     Route: 064
  6. SERZONE [Concomitant]
     Dosage: UNK
     Route: 064
  7. RISPERDAL [Concomitant]
     Dosage: UNK
     Route: 064
  8. ZITHROMAX [Concomitant]
     Dosage: UNK
     Route: 064
  9. CARDEC DM [Concomitant]
     Dosage: UNK
     Route: 064
  10. SEROQUEL [Concomitant]
     Dosage: UNK
     Route: 064
  11. SULFAMETHOXAZOLE/TMP [Concomitant]
     Dosage: UNK
     Route: 064
  12. DIFLUCAN [Concomitant]
     Dosage: UNK
     Route: 064
  13. BUSPIRONE HYDROCHLORIDE [Concomitant]
     Dosage: UNK
     Route: 064
  14. FLOXIN [Concomitant]
     Dosage: UNK
     Route: 064
  15. METRONIDAZOLE [Concomitant]
     Dosage: UNK
     Route: 064
  16. NAPROXEN [Concomitant]
     Dosage: UNK
     Route: 064

REACTIONS (2)
  - Maternal exposure during pregnancy [Unknown]
  - Talipes [Unknown]
